FAERS Safety Report 5340818-4 (Version None)
Quarter: 2007Q2

REPORT INFORMATION
  Report Type: 
  Country: None (occurrence: None)
  Receive Date: 20070405
  Receipt Date: 20061109
  Transmission Date: 20071010
  Serious: Yes (Hospitalization)
  Sender: FDA-Public Use
  Company Number: US200602001529

PATIENT
  Age: 60 Year
  Sex: Male

DRUGS (2)
  1. CYMBALTA [Suspect]
     Indication: ANXIETY
     Dosage: SEE IMAGE
     Route: 048
     Dates: start: 20060118
  2. KLONOPIN [Concomitant]

REACTIONS (5)
  - ASTHENIA [None]
  - BOWEL MOVEMENT IRREGULARITY [None]
  - FEELING ABNORMAL [None]
  - INSOMNIA [None]
  - SOMNOLENCE [None]
